FAERS Safety Report 7014697-3 (Version None)
Quarter: 2010Q3

REPORT INFORMATION
  Report Type: 
  Country: None (occurrence: None)
  Receive Date: 20100927
  Receipt Date: 20100906
  Transmission Date: 20110219
  Serious: Yes (Other)
  Sender: FDA-Public Use
  Company Number: PHHY2010TW56914

PATIENT
  Age: 38 Year
  Sex: Female

DRUGS (2)
  1. EXJADE [Suspect]
     Indication: THALASSAEMIA
     Dosage: 8 DF, QD
     Route: 048
     Dates: start: 20100521, end: 20100524
  2. EXJADE [Suspect]
     Dosage: 4 DF, QD

REACTIONS (6)
  - CHEST PAIN [None]
  - DECREASED APPETITE [None]
  - DIARRHOEA [None]
  - DRUG INTOLERANCE [None]
  - OEDEMA PERIPHERAL [None]
  - RASH GENERALISED [None]
